FAERS Safety Report 9386300 (Version 3)
Quarter: 2013Q3

REPORT INFORMATION
  Report Type: Spontaneous
  Country: PL (occurrence: PL)
  Receive Date: 20130708
  Receipt Date: 20130924
  Transmission Date: 20140515
  Serious: Yes (Hospitalization, Other)
  Sender: FDA-Public Use
  Company Number: PL-AMGEN-POLSP2013046857

PATIENT
  Sex: Female

DRUGS (2)
  1. PROLIA [Suspect]
     Indication: PRODUCT USED FOR UNKNOWN INDICATION
     Dosage: UNK
     Route: 065
  2. CORTICOSTEROIDS [Concomitant]

REACTIONS (5)
  - Spinal pain [Unknown]
  - Choking [Unknown]
  - Cough [Unknown]
  - Chest pain [Unknown]
  - Fatigue [Unknown]
